FAERS Safety Report 13636979 (Version 1)
Quarter: 2017Q2

REPORT INFORMATION
  Report Type: Spontaneous
  Country: JP (occurrence: JP)
  Receive Date: 20170609
  Receipt Date: 20170609
  Transmission Date: 20170830
  Serious: Yes (Other)
  Sender: FDA-Public Use
  Company Number: JP-ALKEM LABORATORIES LIMITED-JP-ALKEM-2017-00305

PATIENT
  Age: 28 Year
  Sex: Female

DRUGS (5)
  1. KANAMYCIN [Concomitant]
     Active Substance: KANAMYCIN\KANAMYCIN A SULFATE
     Indication: MYCOBACTERIUM ABSCESSUS INFECTION
     Dosage: UNKNOWN
  2. FAROPENEM [Concomitant]
     Active Substance: FAROPENEM
     Indication: MYCOBACTERIUM ABSCESSUS INFECTION
     Dosage: UNKNOWN
     Route: 048
     Dates: start: 201411
  3. STREPTOMYCIN [Concomitant]
     Active Substance: STREPTOMYCIN\STREPTOMYCIN SULFATE
     Indication: MYCOBACTERIUM ABSCESSUS INFECTION
     Dosage: UNKNOWN
  4. LINEZOLID. [Suspect]
     Active Substance: LINEZOLID
     Indication: MYCOBACTERIUM ABSCESSUS INFECTION
     Dosage: UNKNOWN
  5. AZITHROMYCIN ANHYDROUS. [Concomitant]
     Active Substance: AZITHROMYCIN ANHYDROUS
     Indication: MYCOBACTERIUM ABSCESSUS INFECTION
     Dosage: UNKNOWN
     Route: 048
     Dates: start: 201411

REACTIONS (2)
  - Thrombocytopenia [Unknown]
  - Malaise [Unknown]
